FAERS Safety Report 15591724 (Version 2)
Quarter: 2019Q3

REPORT INFORMATION
  Report Type: Spontaneous
  Country: US (occurrence: US)
  Receive Date: 20181106
  Receipt Date: 20190710
  Transmission Date: 20191004
  Serious: No
  Sender: FDA-Public Use
  Company Number: US-PFIZER INC-2018442271

PATIENT
  Age: 46 Year
  Sex: Female
  Weight: 57 kg

DRUGS (5)
  1. GABAPENTIN. [Suspect]
     Active Substance: GABAPENTIN
     Indication: NEUROPATHY PERIPHERAL
     Dosage: 1200 MG, DAILY (ORDERED AS 300MG CAPSULES, ONE IN THE MORNING AND FOUR CAPSULES AT NIGHT)
  2. GABAPENTIN. [Suspect]
     Active Substance: GABAPENTIN
     Dosage: 900 MG, 1X/DAY (SHE REDUCED HER DOSE TO JUST THREE CAPSULES AT NIGHTTIME BY MOUTH)
     Route: 048
     Dates: start: 2010, end: 2018
  3. GABAPENTIN. [Suspect]
     Active Substance: GABAPENTIN
     Dosage: 1500 MG, 3X/DAY
     Dates: start: 2009, end: 201809
  4. CYCLOBENZAPRINE. [Concomitant]
     Active Substance: CYCLOBENZAPRINE
     Dosage: 10 MG, UNK
     Dates: start: 1998
  5. HYDROCODONE [Concomitant]
     Active Substance: HYDROCODONE
     Dosage: UNK
     Dates: start: 1999

REACTIONS (3)
  - Dysphemia [Not Recovered/Not Resolved]
  - Off label use [Unknown]
  - Product use in unapproved indication [Unknown]

NARRATIVE: CASE EVENT DATE: 2009
